FAERS Safety Report 9564135 (Version 1)
Quarter: 2013Q3

REPORT INFORMATION
  Report Type: Spontaneous
  Country: US (occurrence: US)
  Receive Date: 20130929
  Receipt Date: 20130929
  Transmission Date: 20140515
  Serious: No
  Sender: FDA-Public Use
  Company Number: US-009507513-1309USA003179

PATIENT
  Sex: Female
  Weight: 86.17 kg

DRUGS (1)
  1. NEXPLANON [Suspect]
     Dosage: 68MG/ONE ROD EVERY THREE YEARS
     Route: 059
     Dates: start: 20130613

REACTIONS (3)
  - Device breakage [Unknown]
  - Device kink [Unknown]
  - No adverse event [Unknown]
